FAERS Safety Report 5104003-3 (Version None)
Quarter: 2006Q3

REPORT INFORMATION
  Report Type: 
  Country: None (occurrence: None)
  Receive Date: 20060911
  Receipt Date: 20060823
  Transmission Date: 20061208
  Serious: Yes (Other)
  Sender: FDA-Public Use
  Company Number: GR200608004705

PATIENT
  Age: 50 Year
  Sex: Female
  Weight: 60 kg

DRUGS (3)
  1. DULOXETINE HYDROCHLORIDE (DULOXETINE HYDROCHLORIDE) CAPSULE [Suspect]
     Indication: DEPRESSION
     Dosage: 60 MG, 2/D, ORAL
     Route: 048
     Dates: start: 20060610, end: 20060625
  2. SEROQUEL [Concomitant]
  3. TRANXENE [Concomitant]

REACTIONS (3)
  - DEPERSONALISATION [None]
  - RESTLESSNESS [None]
  - SUICIDE ATTEMPT [None]
